FAERS Safety Report 19893554 (Version 2)
Quarter: 2022Q4

REPORT INFORMATION
  Report Type: Spontaneous
  Country: US (occurrence: US)
  Receive Date: 20210929
  Receipt Date: 20221018
  Transmission Date: 20230113
  Serious: No
  Sender: FDA-Public Use
  Company Number: US-CELLTRION INC.-2021US006525

PATIENT

DRUGS (1)
  1. INFLECTRA [Suspect]
     Active Substance: INFLIXIMAB-DYYB
     Indication: Neurosarcoidosis
     Dosage: 400 MG EVERY 4 WEEKS VIA PERIPHERAL LINE
     Route: 042

REACTIONS (5)
  - Depression [Unknown]
  - Frustration tolerance decreased [Unknown]
  - Product storage error [Unknown]
  - Off label use [Unknown]
  - Drug ineffective for unapproved indication [Unknown]
